FAERS Safety Report 8493852-X (Version None)
Quarter: 2012Q3

REPORT INFORMATION
  Report Type: 
  Country: None (occurrence: None)
  Receive Date: 20120706
  Receipt Date: 20120620
  Transmission Date: 20120928
  Serious: Yes (Other)
  Sender: FDA-Public Use
  Company Number: JP-ABBOTT-12P-087-0948201-00

PATIENT
  Age: 36 Year
  Sex: Female

DRUGS (11)
  1. LEVOTHYROXINE SODIUM [Suspect]
     Indication: HYPOTHYROIDISM
  2. THIAMYLAL SODIUM [Concomitant]
     Indication: INDUCTION OF ANAESTHESIA
  3. HYDROCORTISONE [Concomitant]
     Indication: PROPHYLAXIS
  4. ISOFLURANE [Suspect]
     Indication: ANAESTHESIA
     Dosage: 0.7-1%
  5. HYDROCORTISONE [Concomitant]
     Indication: ADRENAL DISORDER
  6. REMIFENTANIL [Suspect]
     Indication: ANAESTHESIA
  7. DIAZEPAM [Concomitant]
     Indication: PRODUCT USED FOR UNKNOWN INDICATION
  8. AIR [Concomitant]
     Indication: ANAESTHESIA
     Dosage: 3 L/MIN
  9. RISPERIDONE [Suspect]
     Indication: PRODUCT USED FOR UNKNOWN INDICATION
  10. ROCURONIUM BROMIDE [Concomitant]
     Indication: INDUCTION OF ANAESTHESIA
  11. OXYGEN [Concomitant]
     Indication: ANAESTHESIA
     Dosage: 1 L/MIN

REACTIONS (5)
  - ELECTROCARDIOGRAM ST SEGMENT DEPRESSION [None]
  - SINUS TACHYCARDIA [None]
  - PSYCHIATRIC SYMPTOM [None]
  - VASCULAR FRAGILITY [None]
  - BLOOD PRESSURE DECREASED [None]
